FAERS Safety Report 7757350-0 (Version None)
Quarter: 2011Q3

REPORT INFORMATION
  Report Type: 
  Country: None (occurrence: None)
  Receive Date: 20110916
  Receipt Date: 20110914
  Transmission Date: 20111222
  Serious: Yes (Other)
  Sender: FDA-Public Use
  Company Number: JP-PFIZER INC-2011217414

PATIENT
  Age: 28 Year
  Sex: Female

DRUGS (3)
  1. VARENICLINE TARTRATE [Suspect]
     Dosage: UNK
     Route: 048
     Dates: end: 20110903
  2. VARENICLINE TARTRATE [Suspect]
     Indication: SMOKING CESSATION THERAPY
     Dosage: 0.5 MG, 1X/DAY
     Route: 048
     Dates: start: 20110822
  3. MOTILIUM [Concomitant]
     Indication: NAUSEA
     Dosage: 10 MG, 1X/DAY
     Route: 048
     Dates: start: 20110822, end: 20110903

REACTIONS (3)
  - DRUG ERUPTION [None]
  - ERYTHEMA [None]
  - RASH [None]
